FAERS Safety Report 22325590 (Version 1)
Quarter: 2023Q2

REPORT INFORMATION
  Report Type: Spontaneous
  Country: DE (occurrence: DE)
  Receive Date: 20230516
  Receipt Date: 20230516
  Transmission Date: 20230722
  Serious: Yes (Death, Congenital Anomaly)
  Sender: FDA-Public Use
  Company Number: DE-EMBRYOTOX-202212594-B

PATIENT
  Sex: Male
  Weight: 2.105 kg

DRUGS (4)
  1. CANDESARTAN [Suspect]
     Active Substance: CANDESARTAN
     Indication: Hypertension
     Dosage: 16 MILLIGRAM, QD
     Route: 064
     Dates: start: 20220602, end: 20221212
  2. AMLODIPINE [Concomitant]
     Active Substance: AMLODIPINE BESYLATE
     Indication: Hypertension
     Dosage: 2.5 MILLIGRAM, QD
     Route: 064
     Dates: start: 20220602, end: 20221212
  3. LEVOTHYROXINE [Concomitant]
     Active Substance: LEVOTHYROXINE
     Indication: Hypothyroidism
     Dosage: UNK
     Route: 064
     Dates: start: 20221216, end: 20230109
  4. METHYLDOPA [Concomitant]
     Active Substance: METHYLDOPA
     Indication: Hypertension
     Dosage: UNK
     Route: 064
     Dates: start: 20221213, end: 20230109

REACTIONS (4)
  - Pulmonary hypoplasia [Fatal]
  - Hydrops foetalis [Fatal]
  - Congenital renal disorder [Fatal]
  - Foetal exposure during pregnancy [Unknown]
